FAERS Safety Report 6105693-9 (Version None)
Quarter: 2009Q1

REPORT INFORMATION
  Report Type: 
  Country: None (occurrence: None)
  Receive Date: 20090306
  Receipt Date: 20090223
  Transmission Date: 20090719
  Serious: Yes (Other)
  Sender: FDA-Public Use
  Company Number: US-PFIZER INC-2008094785

PATIENT
  Sex: Male

DRUGS (3)
  1. CHANTIX [Suspect]
     Dosage: UNK
     Dates: start: 20070401
  2. PLAVIX [Concomitant]
  3. ACETYLSALICYLIC ACID [Concomitant]
     Dosage: 325 MG, UNK

REACTIONS (3)
  - FEELING ABNORMAL [None]
  - GASTROINTESTINAL ULCER [None]
  - HAEMOGLOBIN DECREASED [None]
